FAERS Safety Report 8497505 (Version 2)
Quarter: 2018Q1

REPORT INFORMATION
  Report Type: Spontaneous
  Country: US (occurrence: US)
  Receive Date: 20120406
  Receipt Date: 20180215
  Transmission Date: 20180509
  Serious: Yes (Other)
  Sender: FDA-Public Use
  Company Number: US-JNJFOC-20120401971

PATIENT
  Age: 43 Year
  Sex: Male
  Weight: 68.04 kg

DRUGS (2)
  1. HUMIRA [Concomitant]
     Active Substance: ADALIMUMAB
     Indication: PSORIASIS
     Route: 058
     Dates: start: 20110808
  2. STELARA [Suspect]
     Active Substance: USTEKINUMAB
     Indication: PSORIASIS
     Route: 058
     Dates: start: 20120603

REACTIONS (3)
  - Abdominal pain upper [Unknown]
  - Expired product administered [Unknown]
  - Gastric neoplasm [Unknown]

NARRATIVE: CASE EVENT DATE: 20120603
